FAERS Safety Report 4289399-7 (Version None)
Quarter: 2004Q1

REPORT INFORMATION
  Report Type: 
  Country: None (occurrence: None)
  Receive Date: 20040205
  Receipt Date: 20040113
  Transmission Date: 20041129
  Serious: Yes (Hospitalization)
  Sender: FDA-Public Use
  Company Number: A03200400100

PATIENT
  Age: 69 Year
  Sex: Female

DRUGS (7)
  1. ELOXATIN [Suspect]
     Indication: COLORECTAL CANCER METASTATIC
     Dosage: INTRAVENOUS NOS
     Route: 042
     Dates: start: 20040113, end: 20040113
  2. FLUOROURACIL [Concomitant]
  3. LEUCOVORIN CALCIUM [Concomitant]
  4. CALCIUM [Concomitant]
  5. MAGNESIUM [Concomitant]
  6. DEXAMETHASONE [Concomitant]
  7. DOLASETRON MESILATE [Concomitant]

REACTIONS (4)
  - CHEST DISCOMFORT [None]
  - ERYTHEMA [None]
  - NAUSEA [None]
  - PULMONARY EMBOLISM [None]
